FAERS Safety Report 4688393-1 (Version None)
Quarter: 2005Q2

REPORT INFORMATION
  Report Type: 
  Country: None (occurrence: None)
  Receive Date: 20050610
  Receipt Date: 20050610
  Transmission Date: 20051028
  Serious: Yes (Other)
  Sender: FDA-Public Use
  Company Number: None

PATIENT
  Age: 63 Year
  Sex: Female
  Weight: 63 kg

DRUGS (2)
  1. XOLAIR [Suspect]
     Indication: ASTHMA
     Dosage: SUBQ 300 MG Q 2 WKS
     Route: 058
     Dates: start: 20030721
  2. XOLAIR [Suspect]
     Indication: CHRONIC SINUSITIS
     Dosage: SUBQ 300 MG Q 2 WKS
     Route: 058
     Dates: start: 20030721

REACTIONS (4)
  - BREAST PAIN [None]
  - BREAST SWELLING [None]
  - BREAST TENDERNESS [None]
  - WEIGHT INCREASED [None]
